FAERS Safety Report 5920875-4 (Version None)
Quarter: 2008Q4

REPORT INFORMATION
  Report Type: 
  Country: None (occurrence: None)
  Receive Date: 20081015
  Receipt Date: 20081015
  Transmission Date: 20090506
  Serious: Yes (Other)
  Sender: FDA-Public Use
  Company Number: None

PATIENT
  Age: 63 Year
  Sex: Female
  Weight: 89.8122 kg

DRUGS (10)
  1. CARBAMAZEPINE [Suspect]
     Indication: FACIAL PAIN
     Dosage: 100MG ONCE DAILY PO
     Route: 048
     Dates: start: 20081009, end: 20081010
  2. VALTREX [Concomitant]
  3. FLUOXETINE [Concomitant]
  4. LIPITOR [Concomitant]
  5. TYLENOL [Concomitant]
  6. PROXYPHENE100 [Concomitant]
  7. N100 [Concomitant]
  8. MULTI-VITAMIN [Concomitant]
  9. ASCORBIC ACID [Concomitant]
  10. COENZYME Q10 [Concomitant]

REACTIONS (1)
  - RASH [None]
